FAERS Safety Report 7874292 (Version 3)
Quarter: 2014Q3

REPORT INFORMATION
  Report Type: Spontaneous
  Country: US (occurrence: US)
  Receive Date: 20110328
  Receipt Date: 20140704
  Transmission Date: 20150326
  Serious: Yes (Other)
  Sender: FDA-Public Use
  Company Number: US-ASTRAZENECA-2011SE15751

PATIENT
  Age: 53 Year
  Sex: Female

DRUGS (1)
  1. CRESTOR [Suspect]
     Active Substance: ROSUVASTATIN CALCIUM
     Indication: BLOOD CHOLESTEROL INCREASED
     Route: 048

REACTIONS (6)
  - Arthritis [Unknown]
  - Breast cancer [Unknown]
  - Blood cholesterol increased [Unknown]
  - Diabetes mellitus [Unknown]
  - Musculoskeletal stiffness [Unknown]
  - Intentional product misuse [Unknown]
